FAERS Safety Report 8253127-0 (Version None)
Quarter: 2012Q2

REPORT INFORMATION
  Report Type: 
  Country: None (occurrence: None)
  Receive Date: 20120402
  Receipt Date: 20120305
  Transmission Date: 20120825
  Serious: No
  Sender: FDA-Public Use
  Company Number: US-AMGEN-USASP2012014676

PATIENT
  Age: 58 Year
  Sex: Male

DRUGS (1)
  1. ENBREL [Suspect]
     Indication: PSORIATIC ARTHROPATHY
     Dosage: 50 MG EVERY 7-10 DAYS
     Route: 058
     Dates: start: 20060914

REACTIONS (3)
  - PULMONARY FUNCTION TEST ABNORMAL [None]
  - DYSPNOEA EXERTIONAL [None]
  - INJECTION SITE PAIN [None]
